FAERS Safety Report 25763910 (Version 1)
Quarter: 2025Q3

REPORT INFORMATION
  Report Type: Spontaneous
  Country: US (occurrence: US)
  Receive Date: 20250905
  Receipt Date: 20250905
  Transmission Date: 20251020
  Serious: No
  Sender: DOMPE FARMACEUTICI
  Company Number: US-FARMAPROD-202411-3901

PATIENT
  Sex: Female

DRUGS (11)
  1. OXERVATE [Suspect]
     Active Substance: CENEGERMIN-BKBJ
     Indication: Neurotrophic keratopathy
     Route: 047
     Dates: start: 20241017
  2. COMBIGAN [Concomitant]
     Active Substance: BRIMONIDINE TARTRATE\TIMOLOL MALEATE
  3. PRED FORTE [Concomitant]
     Active Substance: PREDNISOLONE ACETATE
  4. ASPIRIN [Concomitant]
     Active Substance: ASPIRIN
  5. PRAVASTATIN SODIUM [Concomitant]
     Active Substance: PRAVASTATIN SODIUM
  6. GEMFIBROZIL [Concomitant]
     Active Substance: GEMFIBROZIL
  7. LISINOPRIL [Concomitant]
     Active Substance: LISINOPRIL
  8. LEVOTHYROXINE SODIUM [Concomitant]
     Active Substance: LEVOTHYROXINE SODIUM
  9. FUROSEMIDE [Concomitant]
     Active Substance: FUROSEMIDE
  10. NOVOLIN R [Concomitant]
     Active Substance: INSULIN HUMAN
  11. NOVOLIN N [Concomitant]
     Active Substance: INSULIN HUMAN

REACTIONS (3)
  - Lacrimation increased [Unknown]
  - Periorbital pain [Unknown]
  - Headache [Unknown]
